FAERS Safety Report 16189222 (Version 1)
Quarter: 2019Q2

REPORT INFORMATION
  Report Type: Report from Study
  Country: FR (occurrence: FR)
  Receive Date: 20190412
  Receipt Date: 20190412
  Transmission Date: 20190711
  Serious: Yes (Death, Other)
  Sender: FDA-Public Use
  Company Number: FR-GLAXOSMITHKLINE-FR2019GSK064044

PATIENT
  Age: 59 Year
  Sex: Male
  Weight: 150 kg

DRUGS (10)
  1. NORADRENALINE [Concomitant]
     Active Substance: NOREPINEPHRINE
     Dosage: UNK
  2. ZANAMIVIR [Suspect]
     Active Substance: ZANAMIVIR
     Indication: INFLUENZA
     Dosage: 600 MG, UNK  (10MG/ML)
     Route: 042
     Dates: start: 20190315, end: 20190315
  3. ZANAMIVIR [Suspect]
     Active Substance: ZANAMIVIR
     Dosage: 400 MG, BID  (10MG/ML)
     Route: 042
     Dates: start: 20190316, end: 20190318
  4. NIMBEX [Concomitant]
     Active Substance: CISATRACURIUM BESYLATE
     Dosage: UNK
  5. MOVICOL [Concomitant]
     Active Substance: POLYETHYLENE GLYCOL 3350\POTASSIUM CHLORIDE\SODIUM BICARBONATE\SODIUM CHLORIDE
     Dosage: UNK
  6. SUFENTANYL [Concomitant]
     Active Substance: SUFENTANIL
     Dosage: UNK
  7. SALBUTAMOL [Concomitant]
     Active Substance: ALBUTEROL
     Dosage: UNK
  8. ZANAMIVIR [Suspect]
     Active Substance: ZANAMIVIR
     Dosage: 150 MG, BID (10MG/ML)
     Route: 042
     Dates: start: 20190319, end: 20190321
  9. OSELTAMIVIR [Concomitant]
     Active Substance: OSELTAMIVIR
     Indication: INFLUENZA
     Dosage: 150 MG, BID
  10. MIDAZOLAM [Concomitant]
     Active Substance: MIDAZOLAM HYDROCHLORIDE
     Dosage: UNK

REACTIONS (5)
  - Condition aggravated [Unknown]
  - Multiple organ dysfunction syndrome [Unknown]
  - Bacterial infection [Fatal]
  - Septic shock [Fatal]
  - Acute kidney injury [Unknown]
